FAERS Safety Report 5934089-5 (Version None)
Quarter: 2008Q4

REPORT INFORMATION
  Report Type: 
  Country: None (occurrence: None)
  Receive Date: 20081029
  Receipt Date: 20081024
  Transmission Date: 20090506
  Serious: Yes (Hospitalization)
  Sender: FDA-Public Use
  Company Number: FR-MERCK-0810FRA00078

PATIENT
  Age: 51 Year
  Sex: Male

DRUGS (11)
  1. CANCIDAS [Suspect]
     Indication: ASPERGILLOSIS
     Route: 041
     Dates: start: 20071226, end: 20080120
  2. SULFAMETHOXAZOLE AND TRIMETHOPRIM [Suspect]
     Route: 065
     Dates: start: 20071207, end: 20071211
  3. SULFAMETHOXAZOLE AND TRIMETHOPRIM [Suspect]
     Route: 065
     Dates: start: 20080111, end: 20080130
  4. VORICONAZOLE [Suspect]
     Indication: ASPERGILLOSIS
     Route: 041
     Dates: start: 20080121
  5. CYCLOPHOSPHAMIDE [Suspect]
     Indication: WEGENER'S GRANULOMATOSIS
     Route: 042
     Dates: start: 20080114
  6. PIPERACILLIN SODIUM AND TAZOBACTAM SODIUM [Suspect]
     Indication: SEPTIC SHOCK
     Route: 041
     Dates: start: 20071213, end: 20080118
  7. ZOPICLONE [Concomitant]
     Indication: INSOMNIA
     Route: 065
  8. FLUINDIONE [Concomitant]
     Indication: PROPHYLAXIS
     Route: 048
  9. FENOFIBRATE [Concomitant]
     Indication: DYSLIPIDAEMIA
     Route: 048
  10. BENFLUOREX HYDROCHLORIDE [Concomitant]
     Route: 048
  11. ALLOPURINOL [Concomitant]
     Indication: GOUT
     Route: 048

REACTIONS (4)
  - ALANINE AMINOTRANSFERASE INCREASED [None]
  - GAMMA-GLUTAMYLTRANSFERASE INCREASED [None]
  - TESTICULAR NEOPLASM [None]
  - WEGENER'S GRANULOMATOSIS [None]
